FAERS Safety Report 10845542 (Version 1)
Quarter: 2015Q1

REPORT INFORMATION
  Report Type: Report from Study
  Country: US (occurrence: US)
  Receive Date: 20150220
  Receipt Date: 20150220
  Transmission Date: 20150721
  Serious: Yes (Hospitalization)
  Sender: FDA-Public Use
  Company Number: US-ABBVIE-14P-163-1327686-00

PATIENT
  Age: 69 Year
  Sex: Female

DRUGS (14)
  1. ALIGN [Concomitant]
     Active Substance: BIFIDOBACTERIUM LONGUM SUBSP. INFANTIS
     Indication: PROPHYLAXIS
     Route: 048
     Dates: start: 2011
  2. IMM [Concomitant]
     Indication: COLITIS ULCERATIVE
     Dates: start: 20141216
  3. ALLOPURINOL. [Concomitant]
     Active Substance: ALLOPURINOL
     Indication: COLITIS ULCERATIVE
     Route: 048
     Dates: start: 20141216
  4. PRILOSEC [Concomitant]
     Active Substance: OMEPRAZOLE MAGNESIUM
     Indication: GASTROOESOPHAGEAL REFLUX DISEASE
     Route: 048
     Dates: start: 200009
  5. GLUCOSAMINE [Concomitant]
     Active Substance: GLUCOSAMINE
     Indication: OSTEOARTHRITIS
     Route: 048
     Dates: start: 2006
  6. IMM [Concomitant]
     Dates: start: 20141217
  7. LIPITOR [Concomitant]
     Active Substance: ATORVASTATIN CALCIUM
     Indication: HYPERCHOLESTEROLAEMIA
     Route: 048
     Dates: start: 2004
  8. SYNTHROID [Concomitant]
     Active Substance: LEVOTHYROXINE SODIUM
     Indication: HYPOTHYROIDISM
     Route: 048
     Dates: start: 2011
  9. ALIGN [Concomitant]
     Active Substance: BIFIDOBACTERIUM LONGUM SUBSP. INFANTIS
     Indication: GASTRIC DISORDER
  10. LEXAPRO [Concomitant]
     Active Substance: ESCITALOPRAM OXALATE
     Indication: DEPRESSION
     Route: 048
     Dates: start: 2009
  11. HUMIRA [Suspect]
     Active Substance: ADALIMUMAB
     Indication: COLITIS ULCERATIVE
     Route: 058
     Dates: start: 20140314, end: 20141219
  12. CALCIUM [Concomitant]
     Active Substance: CALCIUM
     Indication: ROUTINE HEALTH MAINTENANCE
     Route: 048
     Dates: start: 2004
  13. VITAMIN D [Concomitant]
     Active Substance: CHOLECALCIFEROL
     Indication: VITAMIN D DEFICIENCY
     Route: 048
     Dates: start: 2004
  14. LACTAID [Concomitant]
     Active Substance: LACTASE
     Indication: LACTOSE INTOLERANCE
     Route: 048
     Dates: start: 2010

REACTIONS (1)
  - Colitis ulcerative [Recovered/Resolved]

NARRATIVE: CASE EVENT DATE: 20141222
